FAERS Safety Report 8017554-9 (Version None)
Quarter: 2011Q4

REPORT INFORMATION
  Report Type: 
  Country: None (occurrence: None)
  Receive Date: 20111228
  Receipt Date: 20111219
  Transmission Date: 20120403
  Serious: Yes (Hospitalization)
  Sender: FDA-Public Use
  Company Number: AUR-APL-2011-06210

PATIENT
  Age: 10 Year
  Sex: Male

DRUGS (5)
  1. RISPERIDONE [Suspect]
     Indication: PRODUCT USED FOR UNKNOWN INDICATION
     Dosage: ORAL; (4 MG, 1 D), ORAL
     Route: 048
  2. CLONIDINE [Suspect]
     Indication: PRODUCT USED FOR UNKNOWN INDICATION
     Dosage: ORAL; 0.3 MG (0.1 MG, 3 IN 1 D), ORAL
     Route: 048
  3. FAMOTIDINE [Suspect]
     Indication: PRODUCT USED FOR UNKNOWN INDICATION
     Dosage: 40 MG (20 MG, 2 IN 1 DAY), ORAL
     Route: 048
  4. LITHIUM CARBONATE [Suspect]
     Indication: MANIA
     Dosage: (150 MG, 1 D), ORAL; 1200 MG (600 MG, 2 IN 1 D), ORAL; 1800 MG (900 MG, 2 IN 1 D), ORAL
     Route: 048
  5. MELATONIN (MELATONIN) [Suspect]
     Indication: PRODUCT USED FOR UNKNOWN INDICATION
     Dosage: ORAL; (3 MG), ORAL
     Route: 048

REACTIONS (7)
  - CONDITION AGGRAVATED [None]
  - TOXICITY TO VARIOUS AGENTS [None]
  - AGGRESSION [None]
  - EMOTIONAL DISTRESS [None]
  - SUICIDAL IDEATION [None]
  - DYSPHEMIA [None]
  - DRUG INTERACTION [None]
